FAERS Safety Report 7433396-7 (Version None)
Quarter: 2011Q2

REPORT INFORMATION
  Report Type: 
  Country: None (occurrence: None)
  Receive Date: 20110422
  Receipt Date: 20110415
  Transmission Date: 20111010
  Serious: Yes (Death, Hospitalization)
  Sender: FDA-Public Use
  Company Number: JP-GENZYME-THYM-1002006

PATIENT
  Sex: Male
  Weight: 50 kg

DRUGS (8)
  1. THYMOGLOBULIN [Suspect]
     Indication: APLASTIC ANAEMIA
     Dosage: 125 MG, QD
     Route: 042
     Dates: start: 20100824, end: 20100828
  2. FILGRASTIM [Concomitant]
     Indication: APLASTIC ANAEMIA
     Dosage: UNK
     Dates: start: 20100824, end: 20101017
  3. MAGNESIUM [Concomitant]
     Indication: CONSTIPATION PROPHYLAXIS
     Dosage: UNK
     Dates: start: 20100824, end: 20101127
  4. OMEPRAZOLE [Concomitant]
     Indication: GASTRITIS PROPHYLAXIS
     Dosage: UNK
     Dates: start: 20101125, end: 20101125
  5. FAMOTIDIN [Concomitant]
     Indication: GASTRITIS PROPHYLAXIS
     Dosage: UNK
     Dates: start: 20100824, end: 20101125
  6. METHYLPREDNISOLONE SODIUM SUCCINATE [Concomitant]
     Indication: PREMEDICATION
     Dosage: UNK
     Dates: start: 20100824, end: 20100828
  7. ALUMINIUM HYDR GEL W [Concomitant]
     Indication: GASTRITIS PROPHYLAXIS
     Dosage: UNK
     Dates: start: 20101126, end: 20101127
  8. CYCLOSPORINE [Concomitant]
     Indication: APLASTIC ANAEMIA
     Dosage: UNK
     Route: 048
     Dates: start: 20100824, end: 20101126

REACTIONS (4)
  - NAUSEA [None]
  - INTERSTITIAL LUNG DISEASE [None]
  - SEPSIS [None]
  - VOMITING [None]
